FAERS Safety Report 20360388 (Version 1)
Quarter: 2022Q1

REPORT INFORMATION
  Report Type: Other
  Country: GB (occurrence: GB)
  Receive Date: 20220121
  Receipt Date: 20220121
  Transmission Date: 20220423
  Serious: Yes (Other)
  Sender: FDA-Public Use
  Company Number: GB-MACLEODS PHARMA UK LTD-MAC2022034137

PATIENT

DRUGS (6)
  1. MEMANTINE [Suspect]
     Active Substance: MEMANTINE
     Indication: Product used for unknown indication
     Dosage: 10 MILLIGRAM, QD
     Route: 048
     Dates: start: 20210810
  2. BETAMETHASONE VALERATE [Concomitant]
     Active Substance: BETAMETHASONE VALERATE
     Indication: Stasis dermatitis
     Dosage: 1 DOSAGE FORM, QD, APPLY
     Route: 061
     Dates: start: 20210701
  3. Cetraben Emollient [Concomitant]
     Indication: Stasis dermatitis
     Dosage: 1 DOSAGE FORM, QD
     Route: 061
     Dates: start: 20210701
  4. DONEPEZIL HYDROCHLORIDE [Concomitant]
     Active Substance: DONEPEZIL HYDROCHLORIDE
     Indication: Product used for unknown indication
     Dosage: 1 DOSAGE FORM, QD
     Route: 065
     Dates: start: 20210701
  5. MIRTAZAPINE [Concomitant]
     Active Substance: MIRTAZAPINE
     Indication: Product used for unknown indication
     Dosage: 1 DOSAGE FORM, QD, AT NIGHT
     Route: 065
     Dates: start: 20210701
  6. PREGABALIN [Concomitant]
     Active Substance: PREGABALIN
     Indication: Product used for unknown indication
     Dosage: 1 DOSAGE FORM, QD
     Route: 065
     Dates: start: 20210701

REACTIONS (1)
  - Muscle spasms [Recovered/Resolved]

NARRATIVE: CASE EVENT DATE: 20210810
